FAERS Safety Report 6221763-9 (Version None)
Quarter: 2009Q2

REPORT INFORMATION
  Report Type: 
  Country: None (occurrence: None)
  Receive Date: 20090608
  Receipt Date: 20090603
  Transmission Date: 20091009
  Serious: Yes (Death)
  Sender: FDA-Public Use
  Company Number: 2009SP009651

PATIENT
  Age: 58 Year
  Sex: Male
  Weight: 85.2 kg

DRUGS (17)
  1. PEG-INTRON [Suspect]
     Indication: HEPATITIS C
     Dosage: 120 MCG; SC
     Route: 058
     Dates: start: 20080716
  2. REBETOL [Suspect]
     Indication: HEPATITIS C
     Dosage: 1000 MG; PO
     Route: 048
     Dates: start: 20080716
  3. REMICADE [Suspect]
     Indication: HEPATITIS C
     Dosage: 415 MG; IV
     Route: 042
     Dates: start: 20080716, end: 20090408
  4. THERAFLU [Concomitant]
  5. ASPIRIN [Concomitant]
  6. VITAMIN D [Concomitant]
  7. PHENERGAN [Concomitant]
  8. ZITHROMAX [Concomitant]
  9. TRIAMTERENE AND HYDROCHLOROTHIAZIDE [Concomitant]
  10. FISH OIL [Concomitant]
  11. GINKO BILOBA [Concomitant]
  12. GINSENG [Concomitant]
  13. REPARAGEN PLUS GLUCOSAMINE (RNI-249-MACA (LEPIDIUM MYENII) HYPOCOTYLS [Concomitant]
  14. CAT'S CLAW EXTRACT [Concomitant]
  15. VINCARIA [Concomitant]
  16. POTASSIUM CHLORIDE [Concomitant]
  17. KLOR-CON [Concomitant]

REACTIONS (5)
  - BLOOD BILIRUBIN INCREASED [None]
  - CARBON DIOXIDE DECREASED [None]
  - INFLUENZA LIKE ILLNESS [None]
  - RED BLOOD CELL COUNT DECREASED [None]
  - REFUSAL OF TREATMENT BY PATIENT [None]
